FAERS Safety Report 9573739 (Version 1)
Quarter: 2013Q4

REPORT INFORMATION
  Report Type: Report from Study
  Country: CA (occurrence: CA)
  Receive Date: 20131001
  Receipt Date: 20131001
  Transmission Date: 20140711
  Serious: Yes (Other)
  Sender: FDA-Public Use
  Company Number: CA-JNJFOC-20130915562

PATIENT
  Age: 70 Year
  Sex: Female
  Weight: 64 kg

DRUGS (17)
  1. REMICADE [Suspect]
     Indication: RHEUMATOID ARTHRITIS
     Dosage: START DATE GIVEN AS: APPROXIMATELY MARCH/APRIL 2006.
     Route: 042
     Dates: start: 2006
  2. REMICADE [Suspect]
     Indication: CROHN^S DISEASE
     Dosage: START DATE GIVEN AS: APPROXIMATELY MARCH/APRIL 2006.
     Route: 042
     Dates: start: 2006
  3. IMURAN [Concomitant]
     Route: 065
  4. VITAMIN D2 [Concomitant]
     Route: 065
  5. VITAMIN B [Concomitant]
     Route: 065
  6. MULTIVITAMINS [Concomitant]
     Route: 065
  7. CALCIUM [Concomitant]
     Route: 065
  8. APO-LOPERAMIDE [Concomitant]
     Route: 065
  9. TRIMEBUTINE [Concomitant]
     Route: 065
  10. PANTOPRAZOLE [Concomitant]
     Route: 065
  11. MAGNESIUM [Concomitant]
     Route: 065
  12. IRON [Concomitant]
     Route: 065
  13. ASA [Concomitant]
     Route: 065
  14. CELEBREX [Concomitant]
     Route: 065
  15. ALENDRONAT [Concomitant]
     Route: 065
  16. MELATONIN [Concomitant]
     Route: 065
  17. GLUCOSAMINE [Concomitant]
     Route: 065

REACTIONS (1)
  - Squamous cell carcinoma [Unknown]
